FAERS Safety Report 5491235-8 (Version None)
Quarter: 2007Q4

REPORT INFORMATION
  Report Type: 
  Country: None (occurrence: None)
  Receive Date: 20071017
  Receipt Date: 20071008
  Transmission Date: 20080405
  Serious: Yes (Hospitalization)
  Sender: FDA-Public Use
  Company Number: 238573K07USA

PATIENT
  Age: 27 Year
  Sex: Female
  Weight: 68.0396 kg

DRUGS (2)
  1. REBIF [Suspect]
     Indication: MULTIPLE SCLEROSIS
     Dosage: 44 MCG, 3 IN 1 WEEKS, SUBCUTANEOUS
     Route: 058
     Dates: start: 20070517
  2. CYMBALTA [Concomitant]

REACTIONS (7)
  - ABASIA [None]
  - BACK INJURY [None]
  - BACK PAIN [None]
  - CONDITION AGGRAVATED [None]
  - DIZZINESS [None]
  - FALL [None]
  - NO THERAPEUTIC RESPONSE [None]
